FAERS Safety Report 8329600-3 (Version None)
Quarter: 2012Q2

REPORT INFORMATION
  Report Type: 
  Country: None (occurrence: None)
  Receive Date: 20120502
  Receipt Date: 20120419
  Transmission Date: 20120825
  Serious: Yes (Hospitalization)
  Sender: FDA-Public Use
  Company Number: FI-ROCHE-1061458

PATIENT
  Age: 62 Year
  Sex: Female
  Weight: 80 kg

DRUGS (4)
  1. SULFASALAZINE [Concomitant]
     Route: 048
  2. REUMACON [Concomitant]
  3. MABTHERA [Suspect]
     Indication: RHEUMATOID ARTHRITIS
     Route: 042
     Dates: start: 20070705, end: 20070719
  4. MYOCRISIN [Concomitant]

REACTIONS (7)
  - ANGINA PECTORIS [None]
  - ANAEMIA [None]
  - HYPOMAGNESAEMIA [None]
  - CORONARY ARTERY DISEASE [None]
  - CARDIAC FAILURE CONGESTIVE [None]
  - URINARY TRACT INFECTION [None]
  - ACUTE MYOCARDIAL INFARCTION [None]
